FAERS Safety Report 19589540 (Version 1)
Quarter: 2021Q3

REPORT INFORMATION
  Report Type: Spontaneous
  Country: IT (occurrence: IT)
  Receive Date: 20210721
  Receipt Date: 20210721
  Transmission Date: 20211014
  Serious: Yes (Hospitalization)
  Sender: FDA-Public Use
  Company Number: IT-TEVA-2021-IT-1935773

PATIENT
  Age: 2 Decade
  Sex: Female

DRUGS (4)
  1. CLOZAPINE. [Suspect]
     Active Substance: CLOZAPINE
     Indication: 22Q11.2 DELETION SYNDROME
     Dosage: INTRODUCED AT UNKNOWN DOSAGE
     Route: 065
  2. CLOZAPINE. [Suspect]
     Active Substance: CLOZAPINE
     Dosage: 125 MILLIGRAM DAILY; DOSE REDUCED
     Route: 065
  3. CLOMIPRAMINE [Suspect]
     Active Substance: CLOMIPRAMINE
     Indication: 22Q11.2 DELETION SYNDROME
     Dosage: UP TO 15 MG/DIE
     Route: 065
  4. CLOZAPINE. [Suspect]
     Active Substance: CLOZAPINE
     Dosage: PROGRESSIVE DOSAGE UP TO 200 MG/DIE
     Route: 065

REACTIONS (3)
  - Gastrooesophageal reflux disease [Recovered/Resolved]
  - Psychomotor hyperactivity [Unknown]
  - Merycism [Recovered/Resolved]

NARRATIVE: CASE EVENT DATE: 201904
